FAERS Safety Report 20040451 (Version 1)
Quarter: 2021Q4

REPORT INFORMATION
  Report Type: Spontaneous
  Country: US (occurrence: None)
  Receive Date: 20211105
  Receipt Date: 20211105
  Transmission Date: 20220304
  Serious: No
  Sender: FDA-Public Use
  Company Number: None

PATIENT
  Age: 59 Year
  Sex: Female

DRUGS (1)
  1. TACROLIMUS [Suspect]
     Active Substance: TACROLIMUS
     Indication: Lung transplant
     Route: 048
     Dates: start: 202108

REACTIONS (4)
  - Dysgeusia [None]
  - Tremor [None]
  - Tremor [None]
  - Vision blurred [None]

NARRATIVE: CASE EVENT DATE: 20210901
